FAERS Safety Report 8884238 (Version 3)
Quarter: 2013Q1

REPORT INFORMATION
  Report Type: Spontaneous
  Country: US (occurrence: US)
  Receive Date: 20121102
  Receipt Date: 20130116
  Transmission Date: 20140127
  Serious: Yes (Death, Other)
  Sender: FDA-Public Use
  Company Number: US-ASTRAZENECA-2012SE11796

PATIENT
  Age: 88 Year
  Sex: Male
  Weight: 87.5 kg

DRUGS (3)
  1. CRESTOR [Suspect]
     Dosage: EVERY OTHER DAY
     Route: 048
  2. COUMADIN [Suspect]
     Route: 065
  3. PRADAXA [Concomitant]

REACTIONS (10)
  - Death [Fatal]
  - Pancytopenia [Unknown]
  - Exercise tolerance decreased [Unknown]
  - Arrhythmia [Unknown]
  - Oedema peripheral [Unknown]
  - Gout [Unknown]
  - Pain [Unknown]
  - Rash papular [Unknown]
  - Pruritus [Unknown]
  - Intentional drug misuse [Unknown]
